FAERS Safety Report 7552609-4 (Version None)
Quarter: 2011Q2

REPORT INFORMATION
  Report Type: 
  Country: None (occurrence: None)
  Receive Date: 20110616
  Receipt Date: 20110610
  Transmission Date: 20111010
  Serious: Yes (Other)
  Sender: FDA-Public Use
  Company Number: GXKR2010BR13346

PATIENT
  Sex: Female

DRUGS (4)
  1. IBANDRONATE SODIUM [Concomitant]
  2. BONIVA [Concomitant]
     Dosage: 150 MG
  3. CALCIUM UNKNOWN [Suspect]
     Route: 048
  4. INFLEASEMABI [Concomitant]

REACTIONS (3)
  - OESOPHAGITIS [None]
  - ENDOSCOPY [None]
  - PAIN [None]
